FAERS Safety Report 6038026-7 (Version None)
Quarter: 2009Q1

REPORT INFORMATION
  Report Type: 
  Country: None (occurrence: None)
  Receive Date: 20090115
  Receipt Date: 20090106
  Transmission Date: 20090719
  Serious: Yes (Other)
  Sender: FDA-Public Use
  Company Number: US-CELGENEUS-163-20785-09010267

PATIENT

DRUGS (2)
  1. THALOMID [Suspect]
     Indication: LEIOMYOSARCOMA METASTATIC
     Route: 048
  2. TEMOZOLOMIDE [Suspect]
     Indication: LEIOMYOSARCOMA
     Route: 065

REACTIONS (16)
  - ANAEMIA [None]
  - ANOREXIA [None]
  - ATAXIA [None]
  - BLINDNESS [None]
  - CONSTIPATION [None]
  - DISEASE PROGRESSION [None]
  - DRUG TOXICITY [None]
  - FATIGUE [None]
  - NAUSEA [None]
  - NEUROPATHY PERIPHERAL [None]
  - NEUROTOXICITY [None]
  - NEUTROPENIA [None]
  - OEDEMA [None]
  - THERAPEUTIC RESPONSE DECREASED [None]
  - THROMBOCYTOPENIA [None]
  - VOMITING [None]
